FAERS Safety Report 16032389 (Version 1)
Quarter: 2019Q1

REPORT INFORMATION
  Report Type: Spontaneous
  Country: IT (occurrence: IT)
  Receive Date: 20190304
  Receipt Date: 20190304
  Transmission Date: 20190418
  Serious: Yes (Hospitalization)
  Sender: FDA-Public Use
  Company Number: PHHY2019IT046478

PATIENT
  Age: 49 Year
  Sex: Female

DRUGS (3)
  1. ZIMOX [Suspect]
     Active Substance: AMOXICILLIN
     Indication: ANTIBIOTIC THERAPY
     Dosage: 2 DF, QD
     Route: 048
     Dates: start: 20160426, end: 20170503
  2. KLACID [Interacting]
     Active Substance: CLARITHROMYCIN
     Indication: ANTIBIOTIC THERAPY
     Dosage: 2 DF, QD
     Route: 048
     Dates: start: 20170426, end: 20170503
  3. PANTOPRAZOLE [Suspect]
     Active Substance: PANTOPRAZOLE
     Indication: PRODUCT USED FOR UNKNOWN INDICATION
     Dosage: 1 DF, QD
     Route: 048

REACTIONS (3)
  - Drug interaction [Recovering/Resolving]
  - Abdominal pain [Recovering/Resolving]
  - Diarrhoea [Recovering/Resolving]

NARRATIVE: CASE EVENT DATE: 20170503
